FAERS Safety Report 9462920 (Version 2)
Quarter: 2013Q3

REPORT INFORMATION
  Report Type: Spontaneous
  Country: JP (occurrence: None)
  Receive Date: 20130814
  Receipt Date: 20130829
  Transmission Date: 20140515
  Serious: Yes (Hospitalization)
  Sender: FDA-Public Use
  Company Number: TCI2013A04827

PATIENT
  Age: 81 Year
  Sex: Female

DRUGS (3)
  1. TAKEPRON OD [Suspect]
     Route: 048
     Dates: end: 20121204
  2. BAYASPIRIN (ACETYLSALICYLIC ACID) (ACETYLSALICYLIC ACID) [Concomitant]
  3. LASIX (FUROSEMIDE) [Concomitant]

REACTIONS (7)
  - Colitis microscopic [None]
  - Diarrhoea [None]
  - Large intestinal ulcer [None]
  - Aphagia [None]
  - Nutritional condition abnormal [None]
  - Hypokalaemia [None]
  - C-reactive protein increased [None]
